FAERS Safety Report 5163691-6 (Version None)
Quarter: 2006Q4

REPORT INFORMATION
  Report Type: 
  Country: None (occurrence: None)
  Receive Date: 20061204
  Receipt Date: 20010515
  Transmission Date: 20070319
  Serious: Yes (Hospitalization)
  Sender: FDA-Public Use
  Company Number: FR-GLAXOSMITHKLINE-B0108122A

PATIENT
  Age: 1 Day
  Sex: Male
  Weight: 0.7 kg

DRUGS (10)
  1. ZIDOVUDINE [Suspect]
     Indication: ANTIVIRAL PROPHYLAXIS
     Route: 048
     Dates: start: 19971118
  2. ZIDOVUDINE [Suspect]
     Indication: HIV INFECTION
     Route: 048
     Dates: start: 19971021
  3. LAMIVUDINE [Suspect]
     Indication: HIV INFECTION
     Route: 048
     Dates: start: 19971021
  4. RANITIDINE [Concomitant]
     Route: 065
  5. SALBUTAMOL [Concomitant]
     Indication: PREMATURE LABOUR
     Route: 065
  6. BACTRIM [Concomitant]
     Route: 065
  7. CORTICOSTEROIDS [Concomitant]
     Route: 065
  8. POTASSIUM CHLORIDE [Concomitant]
     Route: 065
  9. BROMAZEPAM [Concomitant]
     Route: 065
  10. DOMPERIDONE [Concomitant]
     Route: 065

REACTIONS (19)
  - ANAEMIA [None]
  - APGAR SCORE LOW [None]
  - BRONCHOPULMONARY DYSPLASIA [None]
  - CAESAREAN SECTION [None]
  - CONSTIPATION [None]
  - DEVELOPMENTAL DELAY [None]
  - DRUG EXPOSURE DURING PREGNANCY [None]
  - FOETAL GROWTH RETARDATION [None]
  - GASTROOESOPHAGEAL REFLUX DISEASE [None]
  - GROWTH RETARDATION [None]
  - HYPERTONIA [None]
  - HYPOKINESIA [None]
  - INGUINAL HERNIA [None]
  - NASAL CONGESTION [None]
  - NEUTROPENIA [None]
  - PATENT DUCTUS ARTERIOSUS [None]
  - PLAGIOCEPHALY [None]
  - PREMATURE BABY [None]
  - SMALL FOR DATES BABY [None]
